FAERS Safety Report 16780026 (Version 1)
Quarter: 2019Q4

REPORT INFORMATION
  Report Type: Spontaneous
  Country: US (occurrence: US)
  Receive Date: 20190905
  Receipt Date: 20190905
  Transmission Date: 20200122
  Serious: Yes (Hospitalization, Other)
  Sender: FDA-Public Use
  Company Number: None

PATIENT
  Age: 61 Year
  Sex: Male
  Weight: 83.25 kg

DRUGS (11)
  1. SIMVASTATIN. [Concomitant]
     Active Substance: SIMVASTATIN
  2. FUROSEMIDE. [Concomitant]
     Active Substance: FUROSEMIDE
  3. KCL [Concomitant]
     Active Substance: POTASSIUM CHLORIDE
  4. METOLAZONE. [Concomitant]
     Active Substance: METOLAZONE
  5. MAGNESIUM OXIDE. [Concomitant]
     Active Substance: MAGNESIUM OXIDE
  6. ELIQUIS [Suspect]
     Active Substance: APIXABAN
     Indication: ATRIAL FIBRILLATION
     Dosage: ?          QUANTITY:1 TABLET(S);?
     Route: 048
     Dates: start: 20190715
  7. MVI [Concomitant]
     Active Substance: VITAMINS
  8. METOPROLOL. [Concomitant]
     Active Substance: METOPROLOL
  9. SPIRVA RESPIMAT [Concomitant]
  10. TYLENOL [Concomitant]
     Active Substance: ACETAMINOPHEN
  11. DILTIAZEM. [Concomitant]
     Active Substance: DILTIAZEM

REACTIONS (6)
  - Haemoglobin decreased [None]
  - Haemorrhage [None]
  - Ecchymosis [None]
  - Petechiae [None]
  - Fluid retention [None]
  - Haematocrit decreased [None]

NARRATIVE: CASE EVENT DATE: 20190812
